FAERS Safety Report 6275855-9 (Version None)
Quarter: 2009Q3

REPORT INFORMATION
  Report Type: 
  Country: None (occurrence: None)
  Receive Date: 20090721
  Receipt Date: 20090710
  Transmission Date: 20100115
  Serious: Yes (Other)
  Sender: FDA-Public Use
  Company Number: PL-BAXTER-2009BH011515

PATIENT
  Age: 38 Year
  Sex: Female

DRUGS (5)
  1. HEPARIN [Suspect]
     Indication: PULMONARY EMBOLISM
     Route: 042
  2. HEPARIN [Suspect]
     Route: 040
  3. ACTIVASE [Concomitant]
     Indication: DRUG USE FOR UNKNOWN INDICATION
     Route: 040
  4. ACTIVASE [Concomitant]
     Route: 042
  5. DOBUTAMINE HCL [Concomitant]
     Indication: DRUG USE FOR UNKNOWN INDICATION
     Route: 042

REACTIONS (1)
  - HEPARIN-INDUCED THROMBOCYTOPENIA [None]
